FAERS Safety Report 4686666-X (Version None)
Quarter: 2005Q2

REPORT INFORMATION
  Report Type: 
  Country: None (occurrence: None)
  Receive Date: 20050606
  Receipt Date: 20050523
  Transmission Date: 20051028
  Serious: Yes (Other)
  Sender: FDA-Public Use
  Company Number: GBS050517476

PATIENT
  Age: 95 Year
  Sex: Female

DRUGS (2)
  1. YENTREVE (DULOXETINE HYDROCHLORIDE) [Suspect]
     Indication: INCONTINENCE
     Dosage: 20 MG/2 DAY
     Dates: start: 20050509, end: 20050515
  2. DETRUSITOL (TOLTERODINE L-TARTRATE) [Concomitant]

REACTIONS (5)
  - AGITATION [None]
  - CONFUSIONAL STATE [None]
  - EMOTIONAL DISTRESS [None]
  - FALL [None]
  - FEELING ABNORMAL [None]
